FAERS Safety Report 21571190 (Version 1)
Quarter: 2022Q4

REPORT INFORMATION
  Report Type: Spontaneous
  Country: US (occurrence: None)
  Receive Date: 20221108
  Receipt Date: 20221108
  Transmission Date: 20230113
  Serious: Yes (Other)
  Sender: FDA-Public Use
  Company Number: None

PATIENT
  Age: 49 Year
  Sex: Male
  Weight: 72.9 kg

DRUGS (1)
  1. EPTINEZUMAB [Suspect]
     Active Substance: EPTINEZUMAB
     Indication: Migraine
     Dosage: OTHER FREQUENCY : EVERY3 MONTHS;?
     Route: 042
     Dates: start: 20220217, end: 20220812

REACTIONS (4)
  - Abdominal pain [None]
  - Abdominal pain [None]
  - Constipation [None]
  - Infusion related reaction [None]
